FAERS Safety Report 9424093 (Version 1)
Quarter: 2013Q3

REPORT INFORMATION
  Report Type: Spontaneous
  Country: US (occurrence: US)
  Receive Date: 20130729
  Receipt Date: 20130729
  Transmission Date: 20140515
  Serious: Yes (Other)
  Sender: FDA-Public Use
  Company Number: PHEH2013US015604

PATIENT
  Sex: Male

DRUGS (10)
  1. NEORAL [Suspect]
     Indication: RENAL TRANSPLANT
  2. MYFORTIC [Suspect]
     Indication: RENAL TRANSPLANT
  3. PROGRAF [Suspect]
     Indication: RENAL TRANSPLANT
  4. CELLCEPT [Suspect]
     Indication: RENAL TRANSPLANT
  5. PREDNISONE [Concomitant]
  6. SIMVASTATIN [Concomitant]
     Indication: BLOOD CHOLESTEROL
  7. LOSARTAN [Concomitant]
     Indication: BLOOD PRESSURE
  8. METOPROLOL [Concomitant]
     Indication: BLOOD PRESSURE
  9. CARDURA [Concomitant]
     Indication: BLOOD PRESSURE
  10. MYFORTIC [Concomitant]
     Indication: RENAL TRANSPLANT
     Dosage: 180 MG 4 DAY/4NIGHT

REACTIONS (3)
  - Renal failure [Unknown]
  - Diarrhoea [Unknown]
  - Abdominal pain upper [Unknown]
